FAERS Safety Report 6812349-3 (Version None)
Quarter: 2010Q3

REPORT INFORMATION
  Report Type: 
  Country: None (occurrence: None)
  Receive Date: 20100701
  Receipt Date: 20100628
  Transmission Date: 20110219
  Serious: Yes (Death)
  Sender: FDA-Public Use
  Company Number: PHHY2010IE27104

PATIENT
  Sex: Female

DRUGS (2)
  1. CLOZARIL [Suspect]
     Indication: SCHIZOPHRENIA
     Dosage: 12.5MG/DAY
     Route: 048
     Dates: start: 20070910
  2. SINEMET [Concomitant]
     Dosage: 12.5/50 TID

REACTIONS (2)
  - ASPIRATION [None]
  - PNEUMONIA [None]
